FAERS Safety Report 6023976-8 (Version None)
Quarter: 2008Q4

REPORT INFORMATION
  Report Type: 
  Country: None (occurrence: None)
  Receive Date: 20081230
  Receipt Date: 20081209
  Transmission Date: 20090506
  Serious: No
  Sender: FDA-Public Use
  Company Number: US-B.I. PHARMACEUTICALS,INC./RIDGEFIELD-2008-BP-18525BP

PATIENT
  Sex: Female

DRUGS (5)
  1. SPIRIVA [Suspect]
  2. ADVAIR DISKUS 100/50 [Concomitant]
  3. ALBUTEROL SULFATE [Concomitant]
  4. ATROVENT [Concomitant]
     Route: 055
  5. COMBIVENT [Concomitant]
     Route: 055

REACTIONS (1)
  - DRUG INEFFECTIVE [None]
